FAERS Safety Report 10568466 (Version 2)
Quarter: 2014Q4

REPORT INFORMATION
  Report Type: Report from Study
  Country: TW (occurrence: TW)
  Receive Date: 20141106
  Receipt Date: 20141106
  Transmission Date: 20150529
  Serious: Yes (Hospitalization, Other)
  Sender: FDA-Public Use
  Company Number: TW-US-EMD SERONO, INC.-7301464

PATIENT
  Sex: Female

DRUGS (1)
  1. REBIF [Suspect]
     Active Substance: INTERFERON BETA-1A
     Indication: MULTIPLE SCLEROSIS

REACTIONS (7)
  - Asthenia [Not Recovered/Not Resolved]
  - Swelling [Unknown]
  - Feeling abnormal [Not Recovered/Not Resolved]
  - Drug effect decreased [Unknown]
  - Fall [Unknown]
  - Mouth breathing [Unknown]
  - Choking [Unknown]
